FAERS Safety Report 23306943 (Version 1)
Quarter: 2023Q4

REPORT INFORMATION
  Report Type: Spontaneous
  Country: US (occurrence: US)
  Receive Date: 20231218
  Receipt Date: 20231218
  Transmission Date: 20240110
  Serious: No
  Sender: FDA-Public Use
  Company Number: US-RECKITT BENCKISER HEALTHCARE INT LIMITED-RB-082586-2023

PATIENT
  Age: 48 Year
  Sex: Female
  Weight: 85.91 kg

DRUGS (1)
  1. DELSYM COUGH PLUS CHEST CONGESTION DM [Suspect]
     Active Substance: DEXTROMETHORPHAN HYDROBROMIDE\GUAIFENESIN
     Indication: Product used for unknown indication
     Dosage: 1 TABLESPOON
     Route: 048
     Dates: start: 20221217

REACTIONS (2)
  - Hypertension [Not Recovered/Not Resolved]
  - Expired product administered [Not Recovered/Not Resolved]
